FAERS Safety Report 24413444 (Version 2)
Quarter: 2024Q4

REPORT INFORMATION
  Report Type: Spontaneous
  Country: RU (occurrence: RU)
  Receive Date: 20241008
  Receipt Date: 20241014
  Transmission Date: 20250115
  Serious: Yes (Hospitalization, Other)
  Sender: NOVARTIS
  Company Number: RU-002147023-NVSC2024RU197278

PATIENT
  Age: 40 Year
  Sex: Male

DRUGS (6)
  1. SACUBITRIL\VALSARTAN [Suspect]
     Active Substance: SACUBITRIL\VALSARTAN
     Indication: Dilated cardiomyopathy
     Dosage: UNK
     Route: 065
  2. EPLERENONE [Suspect]
     Active Substance: EPLERENONE
     Indication: Dilated cardiomyopathy
     Dosage: UNK
     Route: 065
  3. TORSEMIDE [Suspect]
     Active Substance: TORSEMIDE
     Indication: Dilated cardiomyopathy
     Dosage: UNK
     Route: 065
  4. CLOPIDOGREL [Suspect]
     Active Substance: CLOPIDOGREL BISULFATE
     Indication: Dilated cardiomyopathy
     Dosage: UNK
     Route: 065
  5. AMIODARONE [Suspect]
     Active Substance: AMIODARONE
     Indication: Dilated cardiomyopathy
     Dosage: UNK
     Route: 065
  6. MELDONIUM DIHYDRATE [Suspect]
     Active Substance: MELDONIUM DIHYDRATE
     Indication: Dilated cardiomyopathy
     Dosage: UNK
     Route: 065

REACTIONS (2)
  - Cardiac failure chronic [Unknown]
  - Disease progression [Unknown]
